FAERS Safety Report 21819244 (Version 2)
Quarter: 2023Q1

REPORT INFORMATION
  Report Type: Spontaneous
  Country: US (occurrence: US)
  Receive Date: 20230104
  Receipt Date: 20230302
  Transmission Date: 20230417
  Serious: No
  Sender: FDA-Public Use
  Company Number: US-Calliditas-2022CAL00639

PATIENT
  Age: 43 Year
  Sex: Female

DRUGS (1)
  1. TARPEYO [Suspect]
     Active Substance: BUDESONIDE
     Indication: Haematuria
     Dosage: 16MG (4MG CAPSULES) DAILY
     Route: 048
     Dates: start: 20221202

REACTIONS (5)
  - Abdominal discomfort [Recovered/Resolved]
  - COVID-19 [Unknown]
  - Energy increased [Unknown]
  - Blood albumin increased [Unknown]
  - Malaise [Unknown]
